FAERS Safety Report 24988027 (Version 1)
Quarter: 2025Q1

REPORT INFORMATION
  Report Type: Spontaneous
  Country: DE (occurrence: DE)
  Receive Date: 20250220
  Receipt Date: 20250220
  Transmission Date: 20250409
  Serious: Yes (Other)
  Sender: ALKEM
  Company Number: DE-ALKEM LABORATORIES LIMITED-DE-ALKEM-2025-01683

PATIENT
  Age: 2 Year
  Sex: Female

DRUGS (5)
  1. SIROLIMUS [Suspect]
     Active Substance: SIROLIMUS
     Indication: Product used for unknown indication
     Route: 065
  2. SIROLIMUS [Suspect]
     Active Substance: SIROLIMUS
     Route: 064
  3. EVEROLIMUS [Suspect]
     Active Substance: EVEROLIMUS
     Indication: Rhabdomyoma
     Route: 065
  4. KIGABEQ [Concomitant]
     Indication: Epilepsy
     Route: 065
  5. METOPROLOL TARTRATE [Concomitant]
     Active Substance: METOPROLOL TARTRATE
     Indication: Ventricular pre-excitation
     Route: 065

REACTIONS (11)
  - Focal dyscognitive seizures [Unknown]
  - Subdural haematoma [Unknown]
  - Pneumonia [Unknown]
  - Superinfection bacterial [Unknown]
  - Foetal exposure during pregnancy [Unknown]
  - Motor developmental delay [Unknown]
  - Neurodevelopmental delay [Unknown]
  - Electroencephalogram abnormal [Unknown]
  - Parainfluenzae virus infection [Unknown]
  - Bronchitis [Unknown]
  - Off label use [Unknown]
